FAERS Safety Report 6809512-4 (Version None)
Quarter: 2010Q2

REPORT INFORMATION
  Report Type: 
  Country: None (occurrence: None)
  Receive Date: 20100630
  Receipt Date: 20100621
  Transmission Date: 20101027
  Serious: Yes (Hospitalization)
  Sender: FDA-Public Use
  Company Number: US-ASTRAZENECA-2010SE19363

PATIENT
  Age: 51 Year
  Sex: Female
  Weight: 116 kg

DRUGS (8)
  1. SEROQUEL XR [Suspect]
     Indication: SLEEP DISORDER
     Route: 048
     Dates: start: 20060601, end: 20090901
  2. LIPITOR [Concomitant]
  3. RANITIDINE [Concomitant]
  4. LAMICTAL [Concomitant]
     Indication: BIPOLAR DISORDER
     Route: 048
  5. LAMICTAL [Concomitant]
     Indication: SCHIZOPHRENIA
     Route: 048
  6. EFFEXOR [Concomitant]
     Indication: BIPOLAR DISORDER
     Route: 048
  7. EFFEXOR [Concomitant]
     Indication: SCHIZOPHRENIA
     Route: 048
  8. CLONAZEPAM [Concomitant]
     Indication: ANXIETY
     Route: 048

REACTIONS (4)
  - DRUG DOSE OMISSION [None]
  - INSOMNIA [None]
  - TRANSIENT ISCHAEMIC ATTACK [None]
  - WEIGHT INCREASED [None]
